FAERS Safety Report 6653918-3 (Version None)
Quarter: 2010Q1

REPORT INFORMATION
  Report Type: 
  Country: None (occurrence: None)
  Receive Date: 20100326
  Receipt Date: 20100315
  Transmission Date: 20100710
  Serious: Yes (Other)
  Sender: FDA-Public Use
  Company Number: US-JNJFOC-20100305328

PATIENT
  Age: 75 Year
  Sex: Female
  Weight: 62.6 kg

DRUGS (5)
  1. EXTRA STRENGTH TYLENOL PM [Suspect]
     Indication: INSOMNIA
  2. AVAPRO [Concomitant]
     Indication: HYPERTENSION
  3. GLUCOSAMINE WITH CHRONDROITIN [Concomitant]
     Indication: MEDICAL DIET
     Dosage: ^AS DIRECTED^
  4. MULTI-VITAMINS [Concomitant]
     Indication: VITAMIN SUPPLEMENTATION
  5. VITAMIN D [Concomitant]
     Indication: VITAMIN SUPPLEMENTATION

REACTIONS (2)
  - HEARING IMPAIRED [None]
  - PRODUCT QUALITY ISSUE [None]
